FAERS Safety Report 16969893 (Version 1)
Quarter: 2019Q4

REPORT INFORMATION
  Report Type: Spontaneous
  Country: AR (occurrence: AR)
  Receive Date: 20191029
  Receipt Date: 20191029
  Transmission Date: 20200122
  Serious: Yes (Other)
  Sender: FDA-Public Use
  Company Number: AR-009507513-1910ARG015772

PATIENT
  Sex: Female

DRUGS (1)
  1. PEMBROLIZUMAB. [Suspect]
     Active Substance: PEMBROLIZUMAB
     Indication: LUNG NEOPLASM MALIGNANT
     Dosage: UNK
     Route: 041

REACTIONS (6)
  - Anal ulcer [Recovered/Resolved]
  - Skin toxicity [Unknown]
  - Mouth ulceration [Recovered/Resolved]
  - Haemangioma [Unknown]
  - Tumour pruritus [Unknown]
  - Pyrexia [Unknown]
